FAERS Safety Report 12602460 (Version 1)
Quarter: 2016Q3

REPORT INFORMATION
  Report Type: Spontaneous
  Country: US (occurrence: None)
  Receive Date: 20160727
  Receipt Date: 20160727
  Transmission Date: 20161109
  Serious: No
  Sender: FDA-Public Use
  Company Number: None

PATIENT
  Age: 42 Year
  Sex: Male
  Weight: 109.77 kg

DRUGS (1)
  1. TOP CARE IBUPROFEN 200MG TABLETS [Suspect]
     Active Substance: IBUPROFEN
     Indication: ARTHRITIS
     Dosage: 200MG X 4 DAILY IN AM
     Dates: start: 20160501, end: 20160515

REACTIONS (5)
  - Arthralgia [None]
  - Product substitution issue [None]
  - Musculoskeletal stiffness [None]
  - Condition aggravated [None]
  - Drug ineffective [None]

NARRATIVE: CASE EVENT DATE: 201605
